FAERS Safety Report 7400102-1 (Version None)
Quarter: 2011Q2

REPORT INFORMATION
  Report Type: 
  Country: None (occurrence: None)
  Receive Date: 20110407
  Receipt Date: 20100607
  Transmission Date: 20111010
  Serious: Yes (Other)
  Sender: FDA-Public Use
  Company Number: PHHY2010DE90921

PATIENT
  Sex: Male

DRUGS (1)
  1. EXTAVIA [Suspect]
     Dates: start: 20100225

REACTIONS (2)
  - THORACIC VERTEBRAL FRACTURE [None]
  - EPILEPSY [None]
